FAERS Safety Report 15603301 (Version 2)
Quarter: 2019Q1

REPORT INFORMATION
  Report Type: Report from Study
  Country: PL (occurrence: PL)
  Receive Date: 20181109
  Receipt Date: 20190204
  Transmission Date: 20190417
  Serious: Yes (Other)
  Sender: FDA-Public Use
  Company Number: PL-CHIESI USA, INC.-PL-2018CHI000485

PATIENT
  Age: 2 Day
  Sex: Male
  Weight: 1.3 kg

DRUGS (5)
  1. AMPICILLIN TZF [Concomitant]
     Indication: NEONATAL INFECTION
     Dosage: 130 MG, QD
     Route: 042
     Dates: start: 20181010, end: 20181012
  2. CUROSURF [Suspect]
     Active Substance: PORACTANT ALFA
     Indication: OFF LABEL USE
  3. CUROSURF [Suspect]
     Active Substance: PORACTANT ALFA
     Indication: NEONATAL RESPIRATORY FAILURE
     Dosage: 3 ML, SINGLE
     Route: 039
     Dates: start: 20181012, end: 20181012
  4. PEYONA [Concomitant]
     Indication: INFANTILE APNOEA
     Dosage: 10 MG, QD
     Route: 042
     Dates: start: 20181010, end: 20181208
  5. GENTAMYCIN KRKA [Concomitant]
     Indication: NEONATAL INFECTION
     Dosage: 6.5 MG, QD
     Route: 042
     Dates: start: 20181010, end: 20181012

REACTIONS (2)
  - Neonatal hypoxia [Recovered/Resolved]
  - Off label use [Unknown]

NARRATIVE: CASE EVENT DATE: 20181012
